FAERS Safety Report 23558402 (Version 1)
Quarter: 2024Q1

REPORT INFORMATION
  Report Type: Spontaneous
  Country: US (occurrence: None)
  Receive Date: 20240222
  Receipt Date: 20240222
  Transmission Date: 20240410
  Serious: Yes (Hospitalization)
  Sender: FDA-Public Use
  Company Number: None

PATIENT
  Sex: Female

DRUGS (1)
  1. BETASERON [Suspect]
     Active Substance: INTERFERON BETA-1B
     Route: 058
     Dates: start: 20220928

REACTIONS (5)
  - Hospitalisation [None]
  - Therapy interrupted [None]
  - Fall [None]
  - Mobility decreased [None]
  - Multiple sclerosis relapse [None]
